FAERS Safety Report 13068108 (Version 1)
Quarter: 2016Q4

REPORT INFORMATION
  Report Type: Spontaneous
  Country: GB (occurrence: GB)
  Receive Date: 20161228
  Receipt Date: 20161228
  Transmission Date: 20170207
  Serious: Yes (Other)
  Sender: FDA-Public Use
  Company Number: GB-TEVA-721868ACC

PATIENT
  Age: 65 Year
  Sex: Female
  Weight: 62 kg

DRUGS (26)
  1. CLENIL MODULITE [Concomitant]
     Active Substance: BECLOMETHASONE DIPROPIONATE
     Dosage: 4 DOSAGE FORMS DAILY; PUFF.
     Dates: start: 20160627, end: 20160908
  2. MORPHINE SULFATE. [Concomitant]
     Active Substance: MORPHINE SULFATE
     Dosage: 40 MILLIGRAM DAILY;
     Dates: start: 20160907
  3. RISPERIDONE. [Concomitant]
     Active Substance: RISPERIDONE
     Dosage: 1 DOSAGE FORMS DAILY; AT 8AM AS PER SPECIALIST.
     Dates: start: 20160503, end: 20161125
  4. CLOPIDOGREL [Suspect]
     Active Substance: CLOPIDOGREL BISULFATE
     Dates: start: 20161207
  5. BISOPROLOL [Concomitant]
     Active Substance: BISOPROLOL
     Dosage: 1 DOSAGE FORMS DAILY; EACH MORNING.
     Dates: start: 20160331
  6. MATRIFEN [Concomitant]
     Active Substance: FENTANYL
     Dosage: PATCH.
     Dates: start: 20160907
  7. PARACETAMOL [Concomitant]
     Active Substance: ACETAMINOPHEN
     Dosage: ONE TO TWO TABLETS TO BE TAKEN EVERY FOUR TO SI...
     Dates: start: 20160907, end: 20161207
  8. LOSARTAN. [Concomitant]
     Active Substance: LOSARTAN
     Dosage: 1 DOSAGE FORMS DAILY; AS PER SPECIALIST.
     Dates: start: 20160630, end: 20161125
  9. METFORMIN [Concomitant]
     Active Substance: METFORMIN HYDROCHLORIDE
     Dosage: 2 DOSAGE FORMS DAILY; AT 8AM AND AT 8PM
     Dates: start: 20160922, end: 20160923
  10. SENNA [Concomitant]
     Active Substance: SENNA LEAF\SENNOSIDES\SENNOSIDES A AND B
     Dosage: 4 DOSAGE FORMS DAILY;
     Dates: start: 20160908, end: 20161125
  11. NEFOPAM [Concomitant]
     Active Substance: NEFOPAM
     Dosage: 3 DOSAGE FORMS DAILY;
     Dates: start: 20160627, end: 20161125
  12. BISACODYL. [Concomitant]
     Active Substance: BISACODYL
     Dosage: 1 -2 TABS TO BE TAKEN AT NIGHT.
     Dates: start: 20160907, end: 20160908
  13. FUROSEMIDE. [Concomitant]
     Active Substance: FUROSEMIDE
     Dosage: 1 DOSAGE FORMS DAILY;
     Dates: start: 20160627
  14. GLYCEROL [Concomitant]
     Active Substance: GLYCERIN
     Indication: CONSTIPATION
     Dates: start: 20160908, end: 20161125
  15. LORAZEPAM. [Concomitant]
     Active Substance: LORAZEPAM
     Indication: AGITATION
     Dosage: TAKE HALF A TABLET WHEN REQUIRED IF AGITATED/AG...
     Dates: start: 20160907, end: 20161125
  16. MICRALAX [Concomitant]
     Dosage: ADMINISTER THE CONTENTS OF ONE MICRO-ENEMA RECT...
     Dates: start: 20160908, end: 20161021
  17. ORAMORPH [Concomitant]
     Active Substance: MORPHINE SULFATE
     Dosage: 20 ML DAILY;
     Route: 048
     Dates: start: 20160627, end: 20161125
  18. QVAR [Concomitant]
     Active Substance: BECLOMETHASONE DIPROPIONATE
     Dosage: 4 DOSAGE FORMS DAILY; PUFFS.
     Route: 055
     Dates: start: 20160908, end: 20161125
  19. GLICLAZIDE [Concomitant]
     Active Substance: GLICLAZIDE
     Dosage: 2 DOSAGE FORMS DAILY; IN MORNING AND IN EVENING.
     Dates: start: 20161126
  20. SPIRONOLACTONE. [Concomitant]
     Active Substance: SPIRONOLACTONE
     Dosage: 1 DOSAGE FORMS DAILY; EACH MORNING.
     Dates: start: 20160912, end: 20161125
  21. VENTOLIN [Concomitant]
     Active Substance: ALBUTEROL SULFATE
     Dosage: 2 PUFFS TO BE INHALED AS REQUIRED UP TO FOUR TI...
     Route: 055
     Dates: start: 20160922, end: 20160923
  22. FOSTAIR [Concomitant]
     Active Substance: BECLOMETHASONE\FORMOTEROL
     Dosage: 4 DOSAGE FORMS DAILY; PUFFS.
     Route: 055
     Dates: start: 20160606
  23. HALOPERIDOL. [Concomitant]
     Active Substance: HALOPERIDOL
     Dates: start: 20161126
  24. LANSOPRAZOLE. [Concomitant]
     Active Substance: LANSOPRAZOLE
     Dosage: 1 DOSAGE FORMS DAILY; AT 8AM
     Dates: start: 20160922, end: 20160923
  25. LAXIDO [Concomitant]
     Active Substance: POLYETHYLENE GLYCOL 3350\POTASSIUM CHLORIDE\SODIUM BICARBONATE\SODIUM CHLORIDE
     Dates: start: 20160512, end: 20161125
  26. NITROFURANTOIN. [Concomitant]
     Active Substance: NITROFURANTOIN
     Dosage: .5 DOSAGE FORMS DAILY; AT NIGHT AS PER UROLOGIST.
     Dates: start: 20160907, end: 20161125

REACTIONS (1)
  - Drug intolerance [Unknown]

NARRATIVE: CASE EVENT DATE: 20161207
